FAERS Safety Report 5497321-0 (Version None)
Quarter: 2007Q4

REPORT INFORMATION
  Report Type: 
  Country: None (occurrence: None)
  Receive Date: 20071025
  Receipt Date: 20061002
  Transmission Date: 20080405
  Serious: No
  Sender: FDA-Public Use
  Company Number: A0622134A

PATIENT
  Sex: Female

DRUGS (3)
  1. ADVAIR DISKUS 100/50 [Suspect]
     Indication: ASTHMA
     Dosage: 1PUFF PER DAY
     Route: 055
     Dates: start: 20041001
  2. ALBUTEROL [Suspect]
     Indication: ASTHMA
     Route: 055
  3. LEVOXYL [Concomitant]

REACTIONS (5)
  - DYSPEPSIA [None]
  - INAPPROPRIATE SCHEDULE OF DRUG ADMINISTRATION [None]
  - RASH [None]
  - URTICARIA THERMAL [None]
  - VERTIGO [None]
